FAERS Safety Report 12542705 (Version 1)
Quarter: 2016Q3

REPORT INFORMATION
  Report Type: Spontaneous
  Country: GB (occurrence: GB)
  Receive Date: 20160709
  Receipt Date: 20160709
  Transmission Date: 20161109
  Serious: Yes (Other)
  Sender: FDA-Public Use
  Company Number: GB-AMGEN-GBRSP2016086938

PATIENT
  Age: 37 Year
  Sex: Female

DRUGS (1)
  1. ARANESP [Suspect]
     Active Substance: DARBEPOETIN ALFA
     Indication: PRODUCT USED FOR UNKNOWN INDICATION
     Dosage: 60 MUG (0.3 ML), UNK
     Route: 065

REACTIONS (2)
  - Blood count abnormal [Unknown]
  - Haemodialysis [Unknown]

NARRATIVE: CASE EVENT DATE: 201503
